FAERS Safety Report 6356575-9 (Version None)
Quarter: 2009Q3

REPORT INFORMATION
  Report Type: 
  Country: None (occurrence: None)
  Receive Date: 20090910
  Receipt Date: 20090910
  Transmission Date: 20100115
  Serious: No
  Sender: FDA-Public Use
  Company Number: None

PATIENT
  Age: 43 Year
  Sex: Female
  Weight: 43.0917 kg

DRUGS (3)
  1. ALENDRONATE SODIUM 70 MG TATEV TEVA, USA [Suspect]
     Indication: OSTEOPENIA
     Dosage: 70 MG ONCE A WEEK PO
     Route: 048
     Dates: start: 20071006, end: 20090717
  2. SPIRONOLACTONE [Concomitant]
  3. LEVOXYL [Concomitant]

REACTIONS (5)
  - BRUXISM [None]
  - LYMPHADENOPATHY [None]
  - OESOPHAGEAL DISORDER [None]
  - PAIN IN JAW [None]
  - SALIVARY GLAND ENLARGEMENT [None]
